FAERS Safety Report 13342785 (Version 1)
Quarter: 2017Q1

REPORT INFORMATION
  Report Type: Spontaneous
  Country: US (occurrence: US)
  Receive Date: 20170316
  Receipt Date: 20170316
  Transmission Date: 20170428
  Serious: Yes (Life-Threatening, Hospitalization, Other)
  Sender: FDA-Public Use
  Company Number: US-SAOL THERAPEUTICS-0700832945

PATIENT
  Sex: Male

DRUGS (9)
  1. COMPOUNDED BACLOFEN [Suspect]
     Active Substance: BACLOFEN
     Dosage: 187.2 ?G, \DAY
     Dates: start: 20170201
  2. MARCAINE [Suspect]
     Active Substance: BUPIVACAINE HYDROCHLORIDE
     Dosage: 3.370 MG, \DAY
     Route: 037
     Dates: start: 20170201
  3. DILAUDID [Suspect]
     Active Substance: HYDROMORPHONE HYDROCHLORIDE
     Dosage: 2.249 MG, \DAY
     Route: 037
  4. COMPOUNDED BACLOFEN [Suspect]
     Active Substance: BACLOFEN
     Dosage: 435.1 ?G, \DAY
     Dates: start: 20170201
  5. COMPOUNDED BACLOFEN [Suspect]
     Active Substance: BACLOFEN
     Dosage: 168.64 ?G, \DAY
     Route: 037
  6. DILAUDID [Suspect]
     Active Substance: HYDROMORPHONE HYDROCHLORIDE
     Dosage: 6.962 MG, \DAY
     Route: 037
     Dates: start: 20170201
  7. MARCAINE [Suspect]
     Active Substance: BUPIVACAINE HYDROCHLORIDE
     Dosage: 2.698 MG, \DAY
     Route: 037
  8. MARCAINE [Suspect]
     Active Substance: BUPIVACAINE HYDROCHLORIDE
     Dosage: 3.370 MG, \DAY
     Route: 037
     Dates: start: 20170201
  9. DILAUDID [Suspect]
     Active Substance: HYDROMORPHONE HYDROCHLORIDE
     Dosage: 2.996 MG, \DAY
     Route: 037
     Dates: start: 20170201

REACTIONS (10)
  - Abdominal pain [Unknown]
  - Blood pressure increased [Unknown]
  - Troponin increased [Unknown]
  - Hernia [Unknown]
  - Abscess [Unknown]
  - Heart injury [Unknown]
  - Implant site extravasation [Unknown]
  - Implant site pain [Unknown]
  - Cardiac arrest [Unknown]
  - Off label use [Unknown]
